FAERS Safety Report 6656846-2 (Version None)
Quarter: 2010Q1

REPORT INFORMATION
  Report Type: 
  Country: None (occurrence: None)
  Receive Date: 20100325
  Receipt Date: 20100316
  Transmission Date: 20100710
  Serious: Yes (Hospitalization, Other)
  Sender: FDA-Public Use
  Company Number: 2010SP016178

PATIENT
  Age: 16 Year
  Sex: Female

DRUGS (5)
  1. CORICIDIN [Suspect]
     Indication: DRUG ABUSE
     Dosage: 6 DF; PO; 32 DF, PO; 44 DF, PO
     Route: 048
     Dates: start: 20090408
  2. CORICIDIN [Suspect]
     Indication: DRUG ABUSE
     Dosage: 6 DF; PO; 32 DF, PO; 44 DF, PO
     Route: 048
     Dates: start: 20090801
  3. CORICIDIN [Suspect]
     Indication: DRUG ABUSE
     Dosage: 6 DF; PO; 32 DF, PO; 44 DF, PO
     Route: 048
     Dates: start: 20091101
  4. CORICIDIN [Suspect]
     Indication: DRUG ABUSE
     Dosage: 6 DF; PO; 32 DF, PO; 44 DF, PO
     Route: 048
     Dates: start: 20100201
  5. VYVANSE [Suspect]
     Indication: DRUG USE FOR UNKNOWN INDICATION

REACTIONS (4)
  - CONVULSION [None]
  - DRUG ABUSE [None]
  - HEART RATE INCREASED [None]
  - INCORRECT DOSE ADMINISTERED [None]
